FAERS Safety Report 6293062-0 (Version None)
Quarter: 2009Q3

REPORT INFORMATION
  Report Type: 
  Country: None (occurrence: None)
  Receive Date: 20090731
  Receipt Date: 20090727
  Transmission Date: 20100115
  Serious: Yes (Death, Hospitalization, Other)
  Sender: FDA-Public Use
  Company Number: EC-ABBOTT-09R-047-0586642-00

PATIENT
  Sex: Male
  Weight: 0.6 kg

DRUGS (1)
  1. SURVANTA [Suspect]
     Indication: NEONATAL RESPIRATORY DISTRESS SYNDROME
     Dosage: 2.4 ML REPEATED AFTER 8 HOURS GIVEN INTRATRACHEAL OTHER = PER ENDOTRACHEAL TUBE
     Route: 050
     Dates: start: 20090720, end: 20090721

REACTIONS (7)
  - CARDIAC ARREST [None]
  - CENTRAL VENOUS CATHETERISATION [None]
  - ECCHYMOSIS [None]
  - FLUID REPLACEMENT [None]
  - HAEMATOMA [None]
  - NEONATAL RESPIRATORY DISTRESS SYNDROME [None]
  - TRAUMATIC DELIVERY [None]
